FAERS Safety Report 17963019 (Version 4)
Quarter: 2021Q4

REPORT INFORMATION
  Report Type: Spontaneous
  Country: US (occurrence: US)
  Receive Date: 20200630
  Receipt Date: 20211119
  Transmission Date: 20220303
  Serious: Yes (Other)
  Sender: FDA-Public Use
  Company Number: US-GILEAD-2020-0476582

PATIENT
  Age: 70 Year
  Sex: Female

DRUGS (3)
  1. VIREAD [Suspect]
     Active Substance: TENOFOVIR DISOPROXIL FUMARATE
     Indication: HIV infection
     Dosage: UNK
     Route: 048
     Dates: start: 201304, end: 201706
  2. TRUVADA [Suspect]
     Active Substance: EMTRICITABINE\TENOFOVIR DISOPROXIL FUMARATE
     Indication: HIV infection
     Dosage: UNK
     Route: 048
     Dates: start: 201301, end: 201706
  3. DESCOVY [Concomitant]
     Active Substance: EMTRICITABINE\TENOFOVIR ALAFENAMIDE FUMARATE

REACTIONS (11)
  - Osteoporosis [Not Recovered/Not Resolved]
  - Fracture [Unknown]
  - Chronic kidney disease [Not Recovered/Not Resolved]
  - Osteonecrosis [Unknown]
  - Renal injury [Unknown]
  - Renal failure [Unknown]
  - Bone loss [Not Recovered/Not Resolved]
  - Bone density decreased [Unknown]
  - Skeletal injury [Unknown]
  - Nephropathy [Not Recovered/Not Resolved]
  - Arthritis [Not Recovered/Not Resolved]

NARRATIVE: CASE EVENT DATE: 20150515
